FAERS Safety Report 5834012-8 (Version None)
Quarter: 2008Q3

REPORT INFORMATION
  Report Type: 
  Country: None (occurrence: None)
  Receive Date: 20080804
  Receipt Date: 20080804
  Transmission Date: 20090109
  Serious: Yes (Other)
  Sender: FDA-Public Use
  Company Number: None

PATIENT
  Age: 40 Year
  Sex: Female
  Weight: 57.6068 kg

DRUGS (1)
  1. PHENYTOIN SOD EXT 100MG [Suspect]
     Indication: EPILEPSY
     Dosage: 100MG 2 TABLES 2X A DAY PO, APPROX. 2 MONTHS
     Route: 048

REACTIONS (2)
  - CONVULSION [None]
  - THERAPEUTIC RESPONSE UNEXPECTED WITH DRUG SUBSTITUTION [None]
